FAERS Safety Report 24336593 (Version 1)
Quarter: 2024Q3

REPORT INFORMATION
  Report Type: Spontaneous
  Country: JP (occurrence: JP)
  Receive Date: 20240919
  Receipt Date: 20240919
  Transmission Date: 20241016
  Serious: No
  Sender: ROCHE
  Company Number: JP-CHUGAI-2023046472

PATIENT
  Sex: Male

DRUGS (13)
  1. TAMIFLU [Suspect]
     Active Substance: OSELTAMIVIR PHOSPHATE
     Indication: Antiviral prophylaxis
     Dosage: 75 MILLIGRAM, QD
     Route: 065
     Dates: start: 20231201, end: 20231205
  2. TAMIFLU [Suspect]
     Active Substance: OSELTAMIVIR PHOSPHATE
     Indication: Influenza
     Dosage: 75 MILLIGRAM, QD
     Route: 065
     Dates: start: 20231207, end: 20231208
  3. TAMIFLU [Suspect]
     Active Substance: OSELTAMIVIR PHOSPHATE
     Dosage: 75 MILLIGRAM, BID
     Route: 065
     Dates: start: 20231209, end: 20231213
  4. LANSOPRAZOLE [Concomitant]
     Active Substance: LANSOPRAZOLE
     Dosage: 1 T, QD
     Dates: start: 20231010
  5. SODIUM PICOSULFATE [Concomitant]
     Active Substance: SODIUM PICOSULFATE
     Dosage: 1 T, QD
     Dates: start: 20231010
  6. ETIZOLAM [Concomitant]
     Active Substance: ETIZOLAM
     Dosage: 1 T, QD
  7. FLUNITRAZEPAM [Concomitant]
     Active Substance: FLUNITRAZEPAM
     Dosage: 1 T, HS
     Dates: start: 20231010
  8. TEGRETOL [Concomitant]
     Active Substance: CARBAMAZEPINE
     Dosage: 2.5 T, BID
  9. CLONAZEPAM [Concomitant]
     Active Substance: CLONAZEPAM
     Dosage: 0.3 GRAM, BID
  10. ZONISAMIDE [Concomitant]
     Active Substance: ZONISAMIDE
     Dosage: 0.7 GRAM, BID
  11. CERCINE [Concomitant]
     Active Substance: DIAZEPAM
     Dosage: 4 MILLIGRAM, QD
  12. DANTRIUM [Concomitant]
     Active Substance: DANTROLENE SODIUM
     Dosage: 4 CAP, TID
  13. HEPARIN SODIUM [Concomitant]
     Active Substance: HEPARIN SODIUM
     Dosage: 50 GRAM, QD
     Dates: start: 20231017

REACTIONS (1)
  - Influenza [Unknown]

NARRATIVE: CASE EVENT DATE: 20231201
